FAERS Safety Report 5156505-1 (Version None)
Quarter: 2006Q4

REPORT INFORMATION
  Report Type: 
  Country: None (occurrence: None)
  Receive Date: 20061113
  Receipt Date: 20061026
  Transmission Date: 20070319
  Serious: Yes (Other)
  Sender: FDA-Public Use
  Company Number: 2006081900

PATIENT
  Age: 49 Year
  Sex: Female
  Weight: 58.9676 kg

DRUGS (2)
  1. BEXTRA [Suspect]
     Indication: PAIN
     Dates: start: 20041101
  2. VIOXX [Suspect]
     Indication: RHEUMATOID ARTHRITIS
     Dosage: 12.5 MG AND/OR 25 MG (1 IN 1 D)
     Dates: start: 19990501, end: 20040301

REACTIONS (2)
  - MYOCARDIAL INFARCTION [None]
  - TRANSIENT ISCHAEMIC ATTACK [None]
